FAERS Safety Report 9185043 (Version 5)
Quarter: 2014Q2

REPORT INFORMATION
  Report Type: Report from Study
  Country: US (occurrence: US)
  Receive Date: 20130325
  Receipt Date: 20140626
  Transmission Date: 20141212
  Serious: Yes (Hospitalization, Other)
  Sender: FDA-Public Use
  Company Number: US-AMGEN-USACT2013019329

PATIENT
  Age: 62 Year
  Sex: Female
  Weight: 64.73 kg

DRUGS (13)
  1. DARBEPOETIN ALFA [Suspect]
     Indication: NEPHROGENIC ANAEMIA
     Dosage: UNK
     Route: 058
     Dates: start: 20120829, end: 20130213
  2. PREFILLED SYRINGE [Suspect]
     Indication: NEPHROGENIC ANAEMIA
     Dosage: UNK
     Route: 058
     Dates: start: 20120829, end: 20130213
  3. EPOETIN ALFA [Concomitant]
     Dosage: 2000 IU, UNK
     Route: 058
     Dates: start: 20130228, end: 20130228
  4. SENSIPAR [Concomitant]
     Dosage: 30 MG, QD
     Route: 048
     Dates: start: 20130228
  5. CETIRIZINE [Concomitant]
     Dosage: 10 MG, QD
     Route: 048
     Dates: start: 20120423
  6. ZANTAC [Concomitant]
     Dosage: 150 MG, QD
     Route: 048
     Dates: start: 20120312
  7. PRAVASTATIN [Concomitant]
     Dosage: UNK
     Dates: start: 20120829
  8. SODIUM BICARBONATE [Concomitant]
     Dosage: 650 MG, QD
     Route: 048
     Dates: start: 20130108, end: 20130314
  9. NIFEREX /01214501/ [Concomitant]
     Dosage: 150 MG, QD
     Route: 048
     Dates: start: 20120312
  10. LIPITOR [Concomitant]
     Dosage: 10 MG, QD
     Route: 048
  11. CLARITIN                           /00413701/ [Concomitant]
     Dosage: 10 MG, QD
     Route: 048
  12. PROTON PUMP INHIBITORS [Concomitant]
     Dosage: UNK
  13. DILACOR XR [Concomitant]
     Dosage: 120 - 240 MG, UNK
     Route: 048
     Dates: start: 20121018

REACTIONS (1)
  - Renal failure chronic [Recovered/Resolved]
